FAERS Safety Report 19163942 (Version 1)
Quarter: 2021Q2

REPORT INFORMATION
  Report Type: Spontaneous
  Country: GB (occurrence: GB)
  Receive Date: 20210421
  Receipt Date: 20210421
  Transmission Date: 20210717
  Serious: Yes (Hospitalization)
  Sender: FDA-Public Use
  Company Number: GB-MYLANLABS-2021M1023558

PATIENT
  Age: 26 Year
  Sex: Female

DRUGS (4)
  1. EPINEPHRINE. [Suspect]
     Active Substance: EPINEPHRINE
     Indication: RESUSCITATION
  2. NALOXONE [Concomitant]
     Active Substance: NALOXONE
     Indication: CARDIAC ARREST
     Dosage: 400 MICROGRAM
     Route: 065
  3. EPINEPHRINE. [Suspect]
     Active Substance: EPINEPHRINE
     Indication: CARDIAC ARREST
     Dosage: 2 MILLIGRAM
     Route: 013
  4. PREGABALIN. [Concomitant]
     Active Substance: PREGABALIN
     Indication: PRODUCT USED FOR UNKNOWN INDICATION
     Dosage: UNK
     Route: 065

REACTIONS (5)
  - Peripheral ischaemia [Recovering/Resolving]
  - Reperfusion injury [Recovering/Resolving]
  - Acute kidney injury [Recovering/Resolving]
  - Compartment syndrome [Recovering/Resolving]
  - Incorrect route of product administration [Unknown]
